FAERS Safety Report 7369955-X (Version None)
Quarter: 2011Q1

REPORT INFORMATION
  Report Type: 
  Country: None (occurrence: None)
  Receive Date: 20110323
  Receipt Date: 20110314
  Transmission Date: 20110831
  Serious: Yes (Other)
  Sender: FDA-Public Use
  Company Number: DE-JNJFOC-20110306962

PATIENT
  Age: 14 Year
  Sex: Female

DRUGS (2)
  1. DOLORMIN FUR KINDER [Suspect]
     Route: 048
  2. DOLORMIN FUR KINDER [Suspect]
     Indication: NASOPHARYNGITIS
     Route: 048

REACTIONS (2)
  - DRUG DEPENDENCE [None]
  - DRUG INEFFECTIVE [None]
